FAERS Safety Report 16820431 (Version 2)
Quarter: 2019Q4

REPORT INFORMATION
  Report Type: Spontaneous
  Country: JP (occurrence: JP)
  Receive Date: 20190918
  Receipt Date: 20191002
  Transmission Date: 20200122
  Serious: No
  Sender: FDA-Public Use
  Company Number: JP-UCBSA-2019039440

PATIENT
  Age: 48 Year
  Sex: Male
  Weight: 60 kg

DRUGS (4)
  1. PROPOFOL. [Concomitant]
     Active Substance: PROPOFOL
     Indication: PRODUCT USED FOR UNKNOWN INDICATION
     Dosage: CONTINUOUS INTRAVENOUS INFUSION
     Route: 042
  2. DIAZEPAM. [Suspect]
     Active Substance: DIAZEPAM
     Indication: SEIZURE
     Dosage: UNKNOWN DOSE
  3. LEVETIRACETAM. [Suspect]
     Active Substance: LEVETIRACETAM
     Indication: SEIZURE
     Dosage: GRADUALLY INCREASED TO 2000 MG/DAY
  4. FOSPHENYTOIN [Suspect]
     Active Substance: FOSPHENYTOIN
     Indication: SEIZURE
     Dosage: UNKNOWN DOSE

REACTIONS (3)
  - Delirium [Unknown]
  - Agitation [Unknown]
  - Drug ineffective [Unknown]
